FAERS Safety Report 4425734-4 (Version None)
Quarter: 2004Q3

REPORT INFORMATION
  Report Type: 
  Country: None (occurrence: None)
  Receive Date: 20040719
  Receipt Date: 20040316
  Transmission Date: 20050211
  Serious: No
  Sender: FDA-Public Use
  Company Number: A03200400818

PATIENT
  Age: 49 Year
  Sex: Male

DRUGS (1)
  1. UROXATRAL [Suspect]
     Indication: BENIGN PROSTATIC HYPERPLASIA
     Dosage: 10 MG OD - ORAL
     Route: 048
     Dates: start: 20040301

REACTIONS (3)
  - LIBIDO DECREASED [None]
  - NASAL CONGESTION [None]
  - RHINITIS [None]
